FAERS Safety Report 6819318-8 (Version None)
Quarter: 2010Q2

REPORT INFORMATION
  Report Type: 
  Country: None (occurrence: None)
  Receive Date: 20100630
  Receipt Date: 20100618
  Transmission Date: 20101027
  Serious: Yes (Hospitalization)
  Sender: FDA-Public Use
  Company Number: 2010AC000038

PATIENT
  Age: 77 Year
  Sex: Female

DRUGS (25)
  1. DIGOXIN [Suspect]
     Dosage: .25 MG; QD; PO
     Route: 048
     Dates: start: 19980401, end: 19980407
  2. DIGOXIN [Suspect]
     Dosage: .125 MG; QD; PO
     Route: 048
     Dates: start: 19980407, end: 20080401
  3. DIGOXIN [Suspect]
     Dosage: GT
     Dates: start: 20080401
  4. CATAPRES [Concomitant]
  5. COUMADIN [Concomitant]
  6. LISINOPRIL [Concomitant]
  7. VIOXX [Concomitant]
  8. CARDIZEM [Concomitant]
  9. HYDROCHLOROTHIAZIDE [Concomitant]
  10. TYLENOL (CAPLET) [Concomitant]
  11. EFFEXOR [Concomitant]
  12. PEPCID [Concomitant]
  13. TRENTAL [Concomitant]
  14. CELEBREX [Concomitant]
  15. ZOCOR [Concomitant]
  16. PERCOCET [Concomitant]
  17. FLOXIN [Concomitant]
  18. FUROSEMIDE [Concomitant]
  19. KLOR-CON [Concomitant]
  20. CARTIA XT [Concomitant]
  21. LACTINOL-E [Concomitant]
  22. BETAMETH/ CLOTRIMAZOL [Concomitant]
  23. TACTINAL [Concomitant]
  24. DILTIAZEM [Concomitant]
  25. HYDROCHLOROTHIAZIDE [Concomitant]

REACTIONS (16)
  - ANGINA UNSTABLE [None]
  - ANXIETY [None]
  - ATRIAL FIBRILLATION [None]
  - ATRIOVENTRICULAR BLOCK COMPLETE [None]
  - BRADYCARDIA [None]
  - CEREBROVASCULAR ACCIDENT [None]
  - CORONARY ARTERY DISEASE [None]
  - DYSARTHRIA [None]
  - ECONOMIC PROBLEM [None]
  - EMBOLIC STROKE [None]
  - EMOTIONAL DISORDER [None]
  - HEART RATE INCREASED [None]
  - HEMIPARESIS [None]
  - INJURY [None]
  - PAIN [None]
  - URINARY TRACT INFECTION [None]
